FAERS Safety Report 26051824 (Version 1)
Quarter: 2025Q4

REPORT INFORMATION
  Report Type: Spontaneous
  Country: JP (occurrence: JP)
  Receive Date: 20251117
  Receipt Date: 20251117
  Transmission Date: 20260117
  Serious: Yes (Other)
  Sender: SPECGX
  Company Number: JP-SPECGX-T202501850

PATIENT
  Age: 73 Year
  Sex: Female

DRUGS (2)
  1. METHADONE [Suspect]
     Active Substance: METHADONE HYDROCHLORIDE
     Indication: Cancer pain
     Dosage: 15 MILLIGRAM, QD
     Route: 048
  2. OXYCODONE HYDROCHLORIDE [Concomitant]
     Active Substance: OXYCODONE HYDROCHLORIDE
     Indication: Neck pain
     Dosage: UNK
     Route: 042

REACTIONS (3)
  - Delirium [Recovered/Resolved]
  - Neuroleptic malignant syndrome [Recovered/Resolved]
  - Nausea [Recovered/Resolved]
